FAERS Safety Report 6259828-8 (Version None)
Quarter: 2009Q3

REPORT INFORMATION
  Report Type: 
  Country: None (occurrence: None)
  Receive Date: 20090706
  Receipt Date: 20090706
  Transmission Date: 20100115
  Serious: Yes (Hospitalization)
  Sender: FDA-Public Use
  Company Number: None

PATIENT
  Sex: Male
  Weight: 68.9467 kg

DRUGS (1)
  1. LORAZEPAM [Suspect]
     Indication: AGITATION
     Dosage: 2 MG XL IV BOLUS
     Route: 040
     Dates: start: 20090630, end: 20090630

REACTIONS (2)
  - FOAMING AT MOUTH [None]
  - UNRESPONSIVE TO STIMULI [None]
